FAERS Safety Report 6297241-8 (Version None)
Quarter: 2009Q3

REPORT INFORMATION
  Report Type: 
  Country: None (occurrence: None)
  Receive Date: 20090804
  Receipt Date: 20090804
  Transmission Date: 20100115
  Serious: Yes (Other)
  Sender: FDA-Public Use
  Company Number: None

PATIENT
  Age: 67 Year
  Sex: Male
  Weight: 86.1834 kg

DRUGS (2)
  1. AMLODIPINE [Suspect]
     Indication: HYPERTENSION
     Dosage: ONE A DAY 2.5 MG MOUTH
     Route: 048
     Dates: start: 20090518, end: 20090620
  2. AMLODIPINE [Suspect]
     Indication: HYPERTENSION
     Dosage: ONE A DAY 2.5 MG MOUTH
     Route: 048
     Dates: start: 20090306, end: 20090518

REACTIONS (1)
  - DIPLOPIA [None]
